FAERS Safety Report 19968800 (Version 1)
Quarter: 2021Q4

REPORT INFORMATION
  Report Type: Spontaneous
  Country: US (occurrence: US)
  Receive Date: 20211015
  Receipt Date: 20211015
  Transmission Date: 20220303
  Serious: No
  Sender: FDA-Public Use
  Company Number: None

PATIENT
  Age: 81 Year
  Sex: Male

DRUGS (7)
  1. REPATHA [Suspect]
     Active Substance: EVOLOCUMAB
     Indication: Hyperlipidaemia
     Route: 058
     Dates: start: 20200515
  2. OFEV [Concomitant]
     Active Substance: NINTEDANIB
  3. AMBRISENTAN [Concomitant]
     Active Substance: AMBRISENTAN
  4. TADALAFIL [Concomitant]
     Active Substance: TADALAFIL
  5. CEPHALEXIN [Concomitant]
     Active Substance: CEPHALEXIN
  6. ELIQUIS [Concomitant]
     Active Substance: APIXABAN
  7. TAMSULOSIN [Concomitant]
     Active Substance: TAMSULOSIN

REACTIONS (1)
  - Hip arthroplasty [None]

NARRATIVE: CASE EVENT DATE: 20211005
